FAERS Safety Report 19076634 (Version 2)
Quarter: 2021Q2

REPORT INFORMATION
  Report Type: Spontaneous
  Country: DE (occurrence: DE)
  Receive Date: 20210331
  Receipt Date: 20210415
  Transmission Date: 20210717
  Serious: Yes (Other)
  Sender: FDA-Public Use
  Company Number: DE-JNJFOC-20210343593

PATIENT
  Age: 78 Year
  Sex: Male
  Weight: 95 kg

DRUGS (4)
  1. RIVAROXABAN [Suspect]
     Active Substance: RIVAROXABAN
     Indication: ATRIAL FIBRILLATION
     Dosage: 20 MG, QD
     Route: 048
     Dates: start: 20201113
  2. RIVAROXABAN [Suspect]
     Active Substance: RIVAROXABAN
     Indication: DIPLOPIA
  3. BISOPROLOL [Concomitant]
     Active Substance: BISOPROLOL
     Indication: ANGINA PECTORIS
     Dosage: 2.5 MG, QD
     Dates: start: 2009
  4. SIMVASTATIN. [Concomitant]
     Active Substance: SIMVASTATIN
     Indication: BLOOD CHOLESTEROL INCREASED
     Dosage: 20 MG, QD
     Dates: start: 2009

REACTIONS (4)
  - Atrial fibrillation [Not Recovered/Not Resolved]
  - Vision blurred [Not Recovered/Not Resolved]
  - Product monitoring error [Unknown]
  - Arthralgia [Recovering/Resolving]

NARRATIVE: CASE EVENT DATE: 20201113
